FAERS Safety Report 12234897 (Version 3)
Quarter: 2016Q4

REPORT INFORMATION
  Report Type: Spontaneous
  Country: US (occurrence: US)
  Receive Date: 20160404
  Receipt Date: 20161014
  Transmission Date: 20170207
  Serious: Yes (Disabling, Other)
  Sender: FDA-Public Use
  Company Number: US-009507513-1604USA000516

PATIENT
  Sex: Male
  Weight: 242.6 kg

DRUGS (2)
  1. PROPECIA [Suspect]
     Active Substance: FINASTERIDE
     Indication: ALOPECIA
     Dosage: 1 MG, QD
     Route: 048
     Dates: start: 1997, end: 2001
  2. PROPECIA [Suspect]
     Active Substance: FINASTERIDE
     Dosage: UNK, UNKNOWN
     Route: 065
     Dates: start: 2008

REACTIONS (10)
  - Sexual dysfunction [Not Recovered/Not Resolved]
  - Emotional distress [Unknown]
  - Loss of libido [Not Recovered/Not Resolved]
  - Erectile dysfunction [Not Recovered/Not Resolved]
  - Ejaculation disorder [Unknown]
  - Hormone level abnormal [Not Recovered/Not Resolved]
  - Brain injury [Not Recovered/Not Resolved]
  - Psoriasis [Unknown]
  - Penis injury [Not Recovered/Not Resolved]
  - Ankle arthroplasty [Unknown]

NARRATIVE: CASE EVENT DATE: 19980724
